FAERS Safety Report 6269922-3 (Version None)
Quarter: 2009Q3

REPORT INFORMATION
  Report Type: 
  Country: None (occurrence: None)
  Receive Date: 20090716
  Receipt Date: 20090708
  Transmission Date: 20100115
  Serious: Yes (Hospitalization, Other)
  Sender: FDA-Public Use
  Company Number: PHHO2009FR06288

PATIENT
  Sex: Female
  Weight: 37 kg

DRUGS (8)
  1. ZOLEDRONIC ACID [Suspect]
     Indication: BONE SARCOMA
     Dosage: 1.9 MG, UNK
     Route: 042
     Dates: start: 20090510
  2. METHOTREXATE [Concomitant]
     Dosage: 15 G, UNK
     Dates: start: 20090507
  3. METHOTREXATE [Concomitant]
     Dosage: 12 G/M^2
     Dates: start: 20090515
  4. CALCIUM [Concomitant]
  5. VITAMIN D [Concomitant]
  6. SKENAN [Concomitant]
     Dosage: UNK
     Dates: start: 20090505
  7. FORLAX [Concomitant]
     Dosage: UNK
     Dates: start: 20090508
  8. SEVREDOL [Concomitant]
     Dosage: UNK
     Dates: start: 20090507

REACTIONS (11)
  - ALANINE AMINOTRANSFERASE INCREASED [None]
  - ASPARTATE AMINOTRANSFERASE INCREASED [None]
  - BLOOD ALKALINE PHOSPHATASE INCREASED [None]
  - C-REACTIVE PROTEIN INCREASED [None]
  - CANDIDIASIS [None]
  - CHILLS [None]
  - DIARRHOEA [None]
  - GAMMA-GLUTAMYLTRANSFERASE INCREASED [None]
  - LIVER FUNCTION TEST ABNORMAL [None]
  - PSEUDOMONAS INFECTION [None]
  - PYREXIA [None]
